FAERS Safety Report 4836422-4 (Version None)
Quarter: 2005Q4

REPORT INFORMATION
  Report Type: 
  Country: None (occurrence: None)
  Receive Date: 20051123
  Receipt Date: 20051116
  Transmission Date: 20060501
  Serious: Yes (Other)
  Sender: FDA-Public Use
  Company Number: US-JNJFOC-20051104747

PATIENT
  Age: 40 Month
  Sex: Male

DRUGS (1)
  1. TOPIRAMATE [Suspect]
     Indication: LENNOX-GASTAUT SYNDROME

REACTIONS (1)
  - HYPOTHYROIDISM [None]
